FAERS Safety Report 6687218-2 (Version None)
Quarter: 2010Q2

REPORT INFORMATION
  Report Type: 
  Country: None (occurrence: None)
  Receive Date: 20100419
  Receipt Date: 20100411
  Transmission Date: 20101027
  Serious: Yes (Hospitalization)
  Sender: FDA-Public Use
  Company Number: US-ABBOTT-10P-163-0632084-00

PATIENT
  Sex: Female
  Weight: 54.026 kg

DRUGS (21)
  1. HUMIRA [Suspect]
     Indication: CROHN'S DISEASE
     Dates: start: 20091231
  2. HUMIRA [Suspect]
     Dates: start: 20100311
  3. TRAZODONE HCL [Concomitant]
     Indication: INSOMNIA
  4. TRAZODONE HCL [Concomitant]
     Indication: PAIN
  5. ASPIRIN [Concomitant]
     Indication: CEREBROVASCULAR ACCIDENT
  6. AMIODARONE [Concomitant]
     Indication: ATRIAL FIBRILLATION
     Dosage: DAILY DOSAGE INCREASED
     Dates: end: 20100326
  7. AMIODARONE [Concomitant]
     Dosage: UNKNOWN DOSE, BUT WAS INCREASED
     Dates: start: 20100301
  8. SIMETHICONE [Concomitant]
     Indication: FLATULENCE
  9. NEXIUM [Concomitant]
     Indication: NAUSEA
  10. NEXIUM [Concomitant]
     Indication: ABDOMINAL DISCOMFORT
  11. LEVOTHYROXINE SODIUM [Concomitant]
     Indication: HYPOTHYROIDISM
  12. MIRALAX [Concomitant]
     Indication: CONSTIPATION
  13. LOVAZA [Concomitant]
     Indication: BLOOD CHOLESTEROL INCREASED
  14. COLACE [Concomitant]
     Indication: CONSTIPATION PROPHYLAXIS
  15. VITAMIN C [Concomitant]
     Indication: DRUG USE FOR UNKNOWN INDICATION
  16. NEURONTIN [Concomitant]
     Indication: HERPES ZOSTER
  17. IRON PILLS [Concomitant]
     Indication: ANAEMIA
  18. PREDNISONE [Concomitant]
     Indication: CROHN'S DISEASE
     Dosage: 40 MG WEANED DOWN
  19. TYLENOL-500 [Concomitant]
     Indication: PAIN
     Dosage: AS REQUIRED
  20. FELODIPINE [Concomitant]
     Indication: TRANSIENT ISCHAEMIC ATTACK
     Dosage: WITHHELD IF BLOOD PRESSURE {140
  21. REMICADE [Concomitant]
     Indication: DRUG USE FOR UNKNOWN INDICATION
     Route: 042
     Dates: start: 20100326

REACTIONS (5)
  - ATRIAL FIBRILLATION [None]
  - DRUG EFFECT DECREASED [None]
  - GASTROINTESTINAL INFLAMMATION [None]
  - NAUSEA [None]
  - URINARY TRACT INFECTION [None]
